FAERS Safety Report 21898604 (Version 2)
Quarter: 2023Q1

REPORT INFORMATION
  Report Type: Spontaneous
  Country: DE (occurrence: DE)
  Receive Date: 20230123
  Receipt Date: 20230207
  Transmission Date: 20230418
  Serious: Yes (Death, Hospitalization, Disabling, Other)
  Sender: FDA-Public Use
  Company Number: DE-002147023-NVSC2021DE315854

PATIENT
  Age: 80 Year
  Sex: Male
  Weight: 69 kg

DRUGS (395)
  1. ALLOPURINOL [Suspect]
     Active Substance: ALLOPURINOL
     Indication: Blood uric acid increased
     Dosage: 1 DF, QD
     Route: 048
  2. ALLOPURINOL [Suspect]
     Active Substance: ALLOPURINOL
     Dosage: 100 MG, QD (MORNING)
     Route: 048
     Dates: start: 20200527
  3. ALLOPURINOL [Suspect]
     Active Substance: ALLOPURINOL
     Dosage: 1 DOSAGE FORM
     Route: 048
  4. ALLOPURINOL [Suspect]
     Active Substance: ALLOPURINOL
     Dosage: 100 MG
     Route: 048
  5. ALLOPURINOL [Suspect]
     Active Substance: ALLOPURINOL
     Dosage: 1 DOSAGE FORM, QD
     Route: 065
  6. ALLOPURINOL [Suspect]
     Active Substance: ALLOPURINOL
     Dosage: 1 DOSAGE FORM, QD
     Route: 048
  7. ACETAMINOPHEN [Suspect]
     Active Substance: ACETAMINOPHEN
     Indication: Analgesic therapy
     Dosage: 650 MG, QD
     Route: 048
  8. ACETAMINOPHEN [Suspect]
     Active Substance: ACETAMINOPHEN
     Indication: Off label use
     Dosage: 5 MG, QD
     Route: 048
  9. ACETAMINOPHEN [Suspect]
     Active Substance: ACETAMINOPHEN
     Indication: Intentional product misuse
     Dosage: 650 MG, QD
     Route: 048
  10. ACETAMINOPHEN [Suspect]
     Active Substance: ACETAMINOPHEN
     Dosage: 650 MG, QD
     Route: 048
  11. ACETAMINOPHEN [Suspect]
     Active Substance: ACETAMINOPHEN
     Dosage: 650 MG, QD
     Route: 048
  12. LANSOPRAZOLE [Suspect]
     Active Substance: LANSOPRAZOLE
     Indication: Antacid therapy
     Dosage: 30 MG, QD
     Route: 048
  13. LANSOPRAZOLE [Suspect]
     Active Substance: LANSOPRAZOLE
     Indication: Gastric pH decreased
  14. HEPARIN SODIUM [Suspect]
     Active Substance: HEPARIN SODIUM
     Indication: Anticoagulant therapy
     Dosage: 50 ML, PRN
     Route: 042
  15. HEPARIN SODIUM [Suspect]
     Active Substance: HEPARIN SODIUM
     Dosage: 250 ML, CYCLIC
     Route: 042
  16. HEPARIN SODIUM [Suspect]
     Active Substance: HEPARIN SODIUM
     Dosage: 50 ML, QD
     Route: 042
  17. HEPARIN SODIUM [Suspect]
     Active Substance: HEPARIN SODIUM
     Dosage: 50 ML, PRN
     Route: 042
     Dates: start: 20200530
  18. GABAPENTIN [Suspect]
     Active Substance: GABAPENTIN
     Indication: Neuralgia
     Dosage: 100 MG, QD (AT BED TIME, EVERY 2H)
     Route: 048
     Dates: start: 20200527
  19. GABAPENTIN [Suspect]
     Active Substance: GABAPENTIN
     Indication: Intentional product misuse
     Dosage: 100 MG, QD
     Route: 048
  20. GABAPENTIN [Suspect]
     Active Substance: GABAPENTIN
     Indication: Bacterial infection
     Dosage: UNK
     Route: 065
  21. GABAPENTIN [Suspect]
     Active Substance: GABAPENTIN
     Indication: Off label use
     Dosage: 100 MG
     Route: 065
  22. CEFTRIAXONE [Suspect]
     Active Substance: CEFTRIAXONE
     Indication: Sepsis
     Dosage: 2 G, QD
     Route: 042
     Dates: start: 20200530
  23. CEFTRIAXONE [Suspect]
     Active Substance: CEFTRIAXONE
     Indication: Bacterial infection
  24. ONDANSETRON [Suspect]
     Active Substance: ONDANSETRON
     Indication: Vomiting
     Dosage: 36 MG, Q8H
     Route: 042
  25. ONDANSETRON [Suspect]
     Active Substance: ONDANSETRON
     Indication: Nausea
     Dosage: 40 MG, Q8H (ORODISPERSIBLE FILM)
     Route: 042
  26. ONDANSETRON [Suspect]
     Active Substance: ONDANSETRON
     Indication: Off label use
     Dosage: 12 MG, Q8H
     Route: 042
  27. ONDANSETRON [Suspect]
     Active Substance: ONDANSETRON
     Dosage: 4 MG, QD
     Route: 042
     Dates: start: 20200601
  28. ONDANSETRON [Suspect]
     Active Substance: ONDANSETRON
     Dosage: 1 DF
     Route: 065
  29. ONDANSETRON [Suspect]
     Active Substance: ONDANSETRON
     Dosage: 41.14 MG (41.14 MG (1 IN 7 HOUR) )
     Route: 017
  30. ONDANSETRON [Suspect]
     Active Substance: ONDANSETRON
     Dosage: 24 MG, QD (8 MILLIGRAM, Q8H)
     Route: 042
  31. ONDANSETRON [Suspect]
     Active Substance: ONDANSETRON
     Dosage: 4 MG, Q8H
     Route: 042
  32. ONDANSETRON [Suspect]
     Active Substance: ONDANSETRON
     Dosage: 8 MG, Q8H
     Route: 042
  33. ONDANSETRON [Suspect]
     Active Substance: ONDANSETRON
     Dosage: 1 DOSAGE FORM, Q8H
     Route: 042
  34. ONDANSETRON [Suspect]
     Active Substance: ONDANSETRON
     Dosage: 41.1 MG, Q8H
     Route: 042
  35. ONDANSETRON [Suspect]
     Active Substance: ONDANSETRON
     Dosage: UNK, Q8H (ORODISPERSIBLE FILM)
     Route: 065
  36. ONDANSETRON [Suspect]
     Active Substance: ONDANSETRON
     Dosage: 1 DOSAGE FORM, QD (ORODISPERSIBLE FILM)
     Route: 065
  37. ONDANSETRON [Suspect]
     Active Substance: ONDANSETRON
     Dosage: UNK (ORODISPERSIBLE FILM)
     Route: 065
  38. METRONIDAZOLE [Suspect]
     Active Substance: METRONIDAZOLE
     Indication: Bacterial infection
     Dosage: 500 MG, Q8H
     Route: 048
  39. METRONIDAZOLE [Suspect]
     Active Substance: METRONIDAZOLE
     Dosage: 500 MG, Q8H (1500 MG QD)
     Route: 048
  40. METRONIDAZOLE [Suspect]
     Active Substance: METRONIDAZOLE
     Dosage: 1500 MG, QD
     Route: 048
  41. METRONIDAZOLE [Suspect]
     Active Substance: METRONIDAZOLE
     Dosage: 1500 MG, QD (500 MG TID)
     Route: 048
  42. AMIODARONE [Suspect]
     Active Substance: AMIODARONE
     Indication: Drug therapy
     Dosage: UNK, QD
     Route: 042
  43. AMIODARONE [Suspect]
     Active Substance: AMIODARONE
     Indication: Ventricular fibrillation
     Dosage: 150 UG, QD
     Route: 042
  44. AMIODARONE [Suspect]
     Active Substance: AMIODARONE
     Indication: Off label use
  45. IPRATROPIUM BROMIDE [Suspect]
     Active Substance: IPRATROPIUM BROMIDE
     Indication: Sleep disorder therapy
     Dosage: UNK, QD
     Route: 055
  46. IPRATROPIUM BROMIDE [Suspect]
     Active Substance: IPRATROPIUM BROMIDE
     Indication: Dyspnoea
     Dosage: 4 DOSAGE FORM, QD (1 DF Q8H)
     Route: 055
  47. IPRATROPIUM BROMIDE [Suspect]
     Active Substance: IPRATROPIUM BROMIDE
     Dosage: 1 DF, Q6H
     Route: 055
  48. IPRATROPIUM BROMIDE [Suspect]
     Active Substance: IPRATROPIUM BROMIDE
     Dosage: UNK
     Route: 048
  49. IPRATROPIUM BROMIDE [Suspect]
     Active Substance: IPRATROPIUM BROMIDE
     Dosage: DOSE: 4 PUFFS, 4X A DAY, QID
     Route: 055
     Dates: start: 20200601
  50. IPRATROPIUM BROMIDE [Suspect]
     Active Substance: IPRATROPIUM BROMIDE
     Dosage: 4 UNK, QD
     Route: 055
  51. IPRATROPIUM BROMIDE [Suspect]
     Active Substance: IPRATROPIUM BROMIDE
     Dosage: 1 DOSAGE FORM, QD
     Route: 055
  52. METAMIZOLE SODIUM [Suspect]
     Active Substance: METAMIZOLE SODIUM
     Indication: Vitamin supplementation
     Dosage: UNK
     Route: 042
  53. METAMIZOLE SODIUM [Suspect]
     Active Substance: METAMIZOLE SODIUM
     Dosage: 5 MG, QD
     Route: 042
  54. SIMVASTATIN [Suspect]
     Active Substance: SIMVASTATIN
     Indication: Blood cholesterol increased
     Dosage: 40 MG, QD (AT BED TIME)
     Route: 048
     Dates: start: 20200527
  55. SIMVASTATIN [Suspect]
     Active Substance: SIMVASTATIN
     Indication: Vitamin supplementation
     Dosage: UNK
     Route: 065
  56. ALBUTEROL SULFATE [Suspect]
     Active Substance: ALBUTEROL SULFATE
     Indication: Chronic obstructive pulmonary disease
     Dosage: UNK, Q6H (QID)
     Route: 055
  57. ALBUTEROL SULFATE [Suspect]
     Active Substance: ALBUTEROL SULFATE
     Dosage: 1 DF, QID
     Route: 055
  58. ALBUTEROL SULFATE [Suspect]
     Active Substance: ALBUTEROL SULFATE
     Dosage: UNK
     Route: 065
  59. ALBUTEROL SULFATE [Suspect]
     Active Substance: ALBUTEROL SULFATE
     Dosage: UNK
     Route: 065
  60. ALBUTEROL SULFATE [Suspect]
     Active Substance: ALBUTEROL SULFATE
     Dosage: 4 DOSAGE FORM, QD
     Route: 065
  61. ALBUTEROL SULFATE [Suspect]
     Active Substance: ALBUTEROL SULFATE
     Dosage: 4 DOSAGE FORM, QD
     Route: 065
  62. ALBUTEROL SULFATE [Suspect]
     Active Substance: ALBUTEROL SULFATE
     Dosage: UNK, Q6H
     Route: 065
  63. ALBUTEROL SULFATE [Suspect]
     Active Substance: ALBUTEROL SULFATE
     Dosage: UNK, Q6H
     Route: 065
  64. ALBUTEROL SULFATE [Suspect]
     Active Substance: ALBUTEROL SULFATE
     Dosage: 1 DF, QID
     Route: 065
  65. FLUTICASONE PROPIONATE\SALMETEROL XINAFOATE [Suspect]
     Active Substance: FLUTICASONE PROPIONATE\SALMETEROL XINAFOATE
     Indication: Nutritional supplementation
     Dosage: UNK
     Route: 065
  66. HYDROMORPHONE HYDROCHLORIDE [Suspect]
     Active Substance: HYDROMORPHONE HYDROCHLORIDE
     Indication: Analgesic therapy
     Dosage: 1 MG, QD
     Route: 058
  67. HYDROMORPHONE HYDROCHLORIDE [Suspect]
     Active Substance: HYDROMORPHONE HYDROCHLORIDE
     Dosage: 6 MG, Q5H
     Route: 058
  68. HYDROMORPHONE HYDROCHLORIDE [Suspect]
     Active Substance: HYDROMORPHONE HYDROCHLORIDE
     Dosage: 6 MG, Q6H
     Route: 058
  69. HYDROMORPHONE HYDROCHLORIDE [Suspect]
     Active Substance: HYDROMORPHONE HYDROCHLORIDE
     Dosage: 6 MG, Q4H
     Route: 058
  70. HYDROMORPHONE HYDROCHLORIDE [Suspect]
     Active Substance: HYDROMORPHONE HYDROCHLORIDE
     Dosage: 24 MG, Q4H
     Route: 058
  71. HYDROMORPHONE HYDROCHLORIDE [Suspect]
     Active Substance: HYDROMORPHONE HYDROCHLORIDE
     Dosage: 24 MG, Q6H
     Route: 058
  72. HYDROMORPHONE HYDROCHLORIDE [Suspect]
     Active Substance: HYDROMORPHONE HYDROCHLORIDE
     Dosage: 1 MG EVERY 6 DAYS
     Route: 058
  73. HYDROMORPHONE HYDROCHLORIDE [Suspect]
     Active Substance: HYDROMORPHONE HYDROCHLORIDE
     Dosage: 17 MG, QD
     Route: 065
  74. HYDROMORPHONE HYDROCHLORIDE [Suspect]
     Active Substance: HYDROMORPHONE HYDROCHLORIDE
     Dosage: 96 MG, QD
     Route: 058
  75. HYDROMORPHONE HYDROCHLORIDE [Suspect]
     Active Substance: HYDROMORPHONE HYDROCHLORIDE
     Dosage: 1 MG, Q4H
     Route: 058
  76. HYDROMORPHONE HYDROCHLORIDE [Suspect]
     Active Substance: HYDROMORPHONE HYDROCHLORIDE
     Dosage: 4 MG, Q4H
     Route: 058
  77. BETAMETHASONE [Suspect]
     Active Substance: BETAMETHASONE
     Indication: Swelling
     Dosage: 1 DF, PRN
     Route: 061
  78. BETAMETHASONE [Suspect]
     Active Substance: BETAMETHASONE
     Dosage: 10 MG, PRN
     Route: 061
  79. BETAMETHASONE [Suspect]
     Active Substance: BETAMETHASONE
     Dosage: UNK
     Route: 061
  80. BETAMETHASONE [Suspect]
     Active Substance: BETAMETHASONE
     Dosage: UNK, PRN
     Route: 061
     Dates: start: 20200527
  81. LANTHANUM CARBONATE [Suspect]
     Active Substance: LANTHANUM CARBONATE
     Indication: Blood phosphorus increased
     Dosage: 500 MG, PRN
     Route: 048
     Dates: start: 20200527
  82. LANTHANUM CARBONATE [Suspect]
     Active Substance: LANTHANUM CARBONATE
     Indication: Hyperphosphataemia
     Dosage: 550 MG, QD
     Route: 048
  83. LANTHANUM CARBONATE [Suspect]
     Active Substance: LANTHANUM CARBONATE
     Dosage: 500 MG, PRN
     Route: 048
  84. FERRLECIT [Suspect]
     Active Substance: SODIUM FERRIC GLUCONATE COMPLEX
     Indication: Iron deficiency
     Dosage: 4.64 MG, Q4W
     Route: 042
  85. FERRLECIT [Suspect]
     Active Substance: SODIUM FERRIC GLUCONATE COMPLEX
     Dosage: 4.64 MG, Q4W (125 MG, Q4WEEKS IN SUCROSE INJECTION)
     Route: 042
  86. FERRLECIT [Suspect]
     Active Substance: SODIUM FERRIC GLUCONATE COMPLEX
     Dosage: 125 MG, Q4W
     Route: 042
  87. FERRLECIT [Suspect]
     Active Substance: SODIUM FERRIC GLUCONATE COMPLEX
     Dosage: 1.25 MG, Q4W
     Route: 042
     Dates: start: 20200527
  88. FERRLECIT [Suspect]
     Active Substance: SODIUM FERRIC GLUCONATE COMPLEX
     Dosage: 125 MG, QW
     Route: 042
  89. FERRLECIT [Suspect]
     Active Substance: SODIUM FERRIC GLUCONATE COMPLEX
     Dosage: 125 MG, QMO
     Route: 042
  90. FERRLECIT [Suspect]
     Active Substance: SODIUM FERRIC GLUCONATE COMPLEX
     Dosage: 17.85 MG, QW (1/ WEEK)
     Route: 042
  91. FERRLECIT [Suspect]
     Active Substance: SODIUM FERRIC GLUCONATE COMPLEX
     Dosage: 125 MG, QD
     Route: 042
  92. FERRLECIT [Suspect]
     Active Substance: SODIUM FERRIC GLUCONATE COMPLEX
     Dosage: 133 ML
     Route: 054
  93. MELATONIN [Suspect]
     Active Substance: MELATONIN
     Indication: Sleep disorder therapy
     Dosage: 3 MG, QD
     Route: 048
     Dates: start: 20200525
  94. MELATONIN [Suspect]
     Active Substance: MELATONIN
     Dosage: 3 MG
     Route: 048
  95. MELATONIN [Suspect]
     Active Substance: MELATONIN
     Dosage: UNK
     Route: 065
  96. UMECLIDINIUM BROMIDE [Suspect]
     Active Substance: UMECLIDINIUM BROMIDE
     Indication: Dyspnoea
     Dosage: 1 IU, QD
     Route: 048
  97. UMECLIDINIUM BROMIDE [Suspect]
     Active Substance: UMECLIDINIUM BROMIDE
     Dosage: 1 DOSAGE FORM
     Route: 048
  98. DEXTROSE [Suspect]
     Active Substance: DEXTROSE
     Indication: Nutritional supplementation
     Dosage: 12.5 G, PRN
     Route: 042
  99. DEXTROSE [Suspect]
     Active Substance: DEXTROSE
     Dosage: UNK
     Route: 065
  100. INSULIN DEGLUDEC [Suspect]
     Active Substance: INSULIN DEGLUDEC
     Indication: Diabetes mellitus
     Dosage: 1 DF, QD
     Route: 058
  101. INSULIN DEGLUDEC [Suspect]
     Active Substance: INSULIN DEGLUDEC
     Dosage: UNK
     Route: 065
  102. INSULIN DEGLUDEC [Suspect]
     Active Substance: INSULIN DEGLUDEC
     Dosage: UNK, PRN
     Route: 058
  103. INSULIN DEGLUDEC [Suspect]
     Active Substance: INSULIN DEGLUDEC
     Dosage: 22 UNITS, AT BEDTIME, ONCE IN A DAY, QD
     Route: 058
     Dates: start: 20200527
  104. FLUTICASONE FUROATE [Suspect]
     Active Substance: FLUTICASONE FUROATE
     Indication: Blood phosphorus increased
     Dosage: 500 MG, PRN
     Route: 048
  105. FLUTICASONE FUROATE [Suspect]
     Active Substance: FLUTICASONE FUROATE
     Indication: Nutritional supplementation
     Dosage: UNK
     Route: 065
  106. FLUTICASONE FUROATE [Suspect]
     Active Substance: FLUTICASONE FUROATE
     Indication: Dyspnoea
     Dosage: 1 IU, QD
     Route: 048
  107. FLUTICASONE FUROATE [Suspect]
     Active Substance: FLUTICASONE FUROATE
     Indication: Off label use
     Dosage: UNK
     Route: 065
  108. VILANTEROL TRIFENATATE [Suspect]
     Active Substance: VILANTEROL TRIFENATATE
     Indication: Dyspnoea
     Dosage: 1 IU, QD (MORNING)
     Route: 048
  109. VILANTEROL TRIFENATATE [Suspect]
     Active Substance: VILANTEROL TRIFENATATE
     Indication: Off label use
     Dosage: UNK
     Route: 065
  110. VILANTEROL TRIFENATATE [Suspect]
     Active Substance: VILANTEROL TRIFENATATE
     Dosage: 1 IU
     Route: 048
  111. VILANTEROL TRIFENATATE [Suspect]
     Active Substance: VILANTEROL TRIFENATATE
     Dosage: 1 IU
     Route: 048
  112. NOREPINEPHRINE [Suspect]
     Active Substance: NOREPINEPHRINE
     Indication: Stress
     Dosage: UNK
     Route: 042
     Dates: start: 20200601
  113. NOREPINEPHRINE [Suspect]
     Active Substance: NOREPINEPHRINE
     Dosage: 1 DOSAGE FORM, QD
     Route: 042
  114. NOREPINEPHRINE [Suspect]
     Active Substance: NOREPINEPHRINE
     Dosage: 3 MG, QD
     Route: 042
  115. DISTIGMINE BROMIDE [Suspect]
     Active Substance: DISTIGMINE BROMIDE
     Indication: Dyspnoea
     Dosage: 1 IU, QD
     Route: 048
  116. DISTIGMINE BROMIDE [Suspect]
     Active Substance: DISTIGMINE BROMIDE
     Dosage: 1 IU
     Route: 048
  117. DISTIGMINE BROMIDE [Suspect]
     Active Substance: DISTIGMINE BROMIDE
     Dosage: UNK
     Route: 048
  118. POLYETHYLENE GLYCOL 3350 AND ELECTROLYTES [Suspect]
     Active Substance: POLYETHYLENE GLYCOL 3350\POTASSIUM CHLORIDE\SODIUM BICARBONATE\SODIUM CHLORIDE\SODIUM SULFATE
     Indication: Constipation
     Dosage: 17 G, QD
     Route: 048
  119. POLYETHYLENE GLYCOL 3350 [Suspect]
     Active Substance: POLYETHYLENE GLYCOL 3350
     Indication: Constipation
     Dosage: 17 G, QD
     Route: 048
  120. POLYETHYLENE GLYCOLS [Suspect]
     Active Substance: POLYETHYLENE GLYCOLS
     Indication: Constipation
     Dosage: 17 MG, QD (1 X/ DAY)
     Route: 048
     Dates: start: 20200601
  121. POLYETHYLENE GLYCOLS [Suspect]
     Active Substance: POLYETHYLENE GLYCOLS
     Dosage: 17 MG, QD
     Route: 048
  122. POLYETHYLENE GLYCOLS [Suspect]
     Active Substance: POLYETHYLENE GLYCOLS
     Dosage: UNK
     Route: 048
  123. POLYETHYLENE GLYCOLS [Suspect]
     Active Substance: POLYETHYLENE GLYCOLS
     Dosage: 17 MG, QD (1 X/ DAY)
     Route: 048
  124. POLYETHYLENE GLYCOLS [Suspect]
     Active Substance: POLYETHYLENE GLYCOLS
     Dosage: 17 G, QD
     Route: 048
  125. ACETAMINOPHEN [Suspect]
     Active Substance: ACETAMINOPHEN
     Indication: Analgesic therapy
     Dosage: 650 MG, QD
     Route: 048
     Dates: start: 20200527
  126. ARANESP [Suspect]
     Active Substance: DARBEPOETIN ALFA
     Indication: Anaemia
     Dosage: 1.42 UG, Q2W (0.71 UG,Q2W)
     Route: 042
  127. ARANESP [Suspect]
     Active Substance: DARBEPOETIN ALFA
     Dosage: 10 MG, Q2W
     Route: 042
  128. ARANESP [Suspect]
     Active Substance: DARBEPOETIN ALFA
     Dosage: 10 UG, CYCLIC
     Route: 042
  129. ARANESP [Suspect]
     Active Substance: DARBEPOETIN ALFA
     Dosage: 1.42 UG, QW (0.71 UG,2/WEEK, QOW)
     Route: 042
  130. ARANESP [Suspect]
     Active Substance: DARBEPOETIN ALFA
     Dosage: 20 MG, QW (10 MG QOW)
     Route: 042
  131. ARANESP [Suspect]
     Active Substance: DARBEPOETIN ALFA
     Dosage: UNK
     Route: 065
  132. ARANESP [Suspect]
     Active Substance: DARBEPOETIN ALFA
     Dosage: 10 MG, Q2W (10 MG,Q2WEEKS)
     Route: 042
     Dates: start: 20200528
  133. ARANESP [Suspect]
     Active Substance: DARBEPOETIN ALFA
     Dosage: 0.71 UG, QW
     Route: 017
  134. CHLORAMPHENICOL [Suspect]
     Active Substance: CHLORAMPHENICOL
     Indication: Bacterial infection
     Dosage: 1500 MG
     Route: 065
  135. CHLORAMPHENICOL [Suspect]
     Active Substance: CHLORAMPHENICOL
     Dosage: UNK
     Route: 065
  136. PHYTONADIONE [Suspect]
     Active Substance: PHYTONADIONE
     Indication: Vitamin supplementation
     Dosage: 5 MG
     Route: 042
  137. PHYTONADIONE [Suspect]
     Active Substance: PHYTONADIONE
     Indication: Off label use
     Dosage: 5 MG, PRN
     Route: 042
  138. DEXTROSE [Suspect]
     Active Substance: DEXTROSE
     Indication: Nutritional supplementation
     Dosage: 12.5 G, PRN (DEXTROSE)
     Route: 042
  139. DEXTROSE [Suspect]
     Active Substance: DEXTROSE
     Indication: Anticoagulant therapy
     Dosage: 12.5 MG (DEXTROSE)
     Route: 042
  140. DEXTROSE [Suspect]
     Active Substance: DEXTROSE
     Dosage: 1.25 G, PRN
     Route: 042
  141. DEXTROSE [Suspect]
     Active Substance: DEXTROSE
     Dosage: 12.5 MG, QD
     Route: 042
  142. DEXTROSE [Suspect]
     Active Substance: DEXTROSE
     Dosage: 12 G, QD
     Route: 042
  143. DEXTROSE [Suspect]
     Active Substance: DEXTROSE
     Dosage: 12.5 G, PRN
     Route: 042
  144. DEXTROSE [Suspect]
     Active Substance: DEXTROSE
     Dosage: 12.5 G, PRN
     Route: 042
  145. DEXTROSE [Suspect]
     Active Substance: DEXTROSE
     Dosage: 12.5 G, PRN
     Route: 042
  146. .ALPHA.-TOCOPHEROL, DL- [Suspect]
     Active Substance: .ALPHA.-TOCOPHEROL, DL-
     Indication: Nutritional supplementation
     Dosage: 12.5 G, PRN
     Route: 042
  147. .ALPHA.-TOCOPHEROL, DL- [Suspect]
     Active Substance: .ALPHA.-TOCOPHEROL, DL-
     Dosage: UNK
     Route: 042
  148. .ALPHA.-TOCOPHEROL, DL- [Suspect]
     Active Substance: .ALPHA.-TOCOPHEROL, DL-
     Dosage: 1 IU, QD
     Route: 065
  149. .ALPHA.-TOCOPHEROL, DL- [Suspect]
     Active Substance: .ALPHA.-TOCOPHEROL, DL-
     Dosage: 5 MG
     Route: 042
  150. ALBUTEROL SULFATE [Suspect]
     Active Substance: ALBUTEROL SULFATE
     Indication: Chronic obstructive pulmonary disease
     Dosage: UNK, Q6H
     Route: 055
     Dates: start: 20200601
  151. ALBUTEROL SULFATE [Suspect]
     Active Substance: ALBUTEROL SULFATE
     Dosage: DOSE: 4 PUFFS UNK UNK, QD
  152. ALBUTEROL SULFATE [Suspect]
     Active Substance: ALBUTEROL SULFATE
     Dosage: 4 DOSAGE FORM
  153. ALBUTEROL SULFATE [Suspect]
     Active Substance: ALBUTEROL SULFATE
     Dosage: UNK, QID (QID PER 6 HOURS)
     Route: 050
  154. ALBUTEROL SULFATE [Suspect]
     Active Substance: ALBUTEROL SULFATE
     Dosage: UNK, QD
     Route: 050
  155. ALBUTEROL SULFATE [Suspect]
     Active Substance: ALBUTEROL SULFATE
     Dosage: 4 DOSAGE FORM, QD (1 DOSAGE FORM)
     Route: 055
  156. ALBUTEROL SULFATE [Suspect]
     Active Substance: ALBUTEROL SULFATE
     Dosage: 4 DOSAGE FORM, QD (1 DOSAGE FORM QID)
     Route: 055
  157. ALBUTEROL SULFATE [Suspect]
     Active Substance: ALBUTEROL SULFATE
     Dosage: 4 DOSAGE FORM, QD
     Route: 055
  158. ALBUTEROL SULFATE [Suspect]
     Active Substance: ALBUTEROL SULFATE
     Dosage: UNK
  159. ALBUTEROL SULFATE [Suspect]
     Active Substance: ALBUTEROL SULFATE
     Dosage: UNK
     Route: 065
  160. ALBUTEROL SULFATE [Suspect]
     Active Substance: ALBUTEROL SULFATE
     Dosage: UNK, QID
  161. METAMIZOLE SODIUM [Suspect]
     Active Substance: METAMIZOLE SODIUM
     Indication: Vitamin supplementation
     Dosage: 5 MG
     Route: 042
  162. METAMIZOLE SODIUM [Suspect]
     Active Substance: METAMIZOLE SODIUM
     Dosage: UNK
     Route: 042
  163. DARBEPOETIN ALFA [Suspect]
     Active Substance: DARBEPOETIN ALFA
     Indication: Anaemia
     Dosage: 10 MG, QOD
     Route: 042
  164. DARBEPOETIN ALFA [Suspect]
     Active Substance: DARBEPOETIN ALFA
     Dosage: 0.71 UG, QOD
     Route: 042
  165. ALLANTOIN [Suspect]
     Active Substance: ALLANTOIN
     Indication: Constipation
     Dosage: 17 G, QD
     Route: 065
  166. SODIUM CITRATE [Suspect]
     Active Substance: SODIUM CITRATE
     Indication: Thrombosis
     Dosage: 2.5 ML, PRN
     Route: 065
     Dates: start: 20200603
  167. SODIUM CITRATE [Suspect]
     Active Substance: SODIUM CITRATE
     Indication: Anticoagulant therapy
     Dosage: 2.5 MG, QD
     Route: 065
  168. SODIUM CITRATE [Suspect]
     Active Substance: SODIUM CITRATE
     Dosage: 2.5 ML, QD (4 GM/100 ML SOLUTION UNASSIGNED)
     Route: 065
  169. SODIUM CITRATE [Suspect]
     Active Substance: SODIUM CITRATE
     Dosage: 2 G, QD
     Route: 065
  170. SODIUM CITRATE [Suspect]
     Active Substance: SODIUM CITRATE
     Dosage: 2 G
     Route: 065
  171. SODIUM CITRATE [Suspect]
     Active Substance: SODIUM CITRATE
     Dosage: UNK UNK, QD
     Route: 065
  172. VASOPRESSIN [Suspect]
     Active Substance: VASOPRESSIN
     Indication: Drug therapy
     Dosage: 50 ML, QD
     Route: 042
     Dates: start: 20200602
  173. VASOPRESSIN [Suspect]
     Active Substance: VASOPRESSIN
     Indication: Diuretic therapy
     Dosage: UNK
     Route: 042
  174. VASOPRESSIN [Suspect]
     Active Substance: VASOPRESSIN
     Dosage: UNK
     Route: 042
  175. VASOPRESSIN [Suspect]
     Active Substance: VASOPRESSIN
     Dosage: UNK
     Route: 065
  176. VASOPRESSIN [Suspect]
     Active Substance: VASOPRESSIN
     Dosage: UNK
     Route: 065
  177. VASOPRESSIN [Suspect]
     Active Substance: VASOPRESSIN
     Dosage: 250 ML, QD
     Route: 042
  178. VASOPRESSIN [Suspect]
     Active Substance: VASOPRESSIN
     Dosage: 250 ML, QD
     Route: 042
  179. DALTEPARIN SODIUM [Suspect]
     Active Substance: DALTEPARIN SODIUM
     Indication: Pulmonary embolism
     Dosage: 2.5 ML, PRN
     Route: 048
  180. DALTEPARIN SODIUM [Suspect]
     Active Substance: DALTEPARIN SODIUM
     Indication: Thrombosis
     Dosage: UNK
     Route: 048
  181. WARFARIN SODIUM [Suspect]
     Active Substance: WARFARIN SODIUM
     Indication: Thrombosis
     Dosage: 2 MG, PRN (AT BED TIME ON ALTERNATE DAYS)
     Route: 048
     Dates: start: 20200527
  182. WARFARIN SODIUM [Suspect]
     Active Substance: WARFARIN SODIUM
     Indication: Intentional product misuse
     Dosage: 2 G, QD
     Route: 048
  183. WARFARIN SODIUM [Suspect]
     Active Substance: WARFARIN SODIUM
     Dosage: 2 ML, QD
     Route: 048
  184. WARFARIN SODIUM [Suspect]
     Active Substance: WARFARIN SODIUM
     Dosage: UNK
     Route: 048
  185. WARFARIN SODIUM [Suspect]
     Active Substance: WARFARIN SODIUM
     Dosage: 2 ML
     Route: 048
  186. WARFARIN SODIUM [Suspect]
     Active Substance: WARFARIN SODIUM
     Dosage: 2 MG, QD
     Route: 048
  187. WARFARIN SODIUM [Suspect]
     Active Substance: WARFARIN SODIUM
     Dosage: 2 MG
     Route: 048
  188. WARFARIN SODIUM [Suspect]
     Active Substance: WARFARIN SODIUM
     Dosage: 2 ML
     Route: 048
  189. DOBUTAMINE [Suspect]
     Active Substance: DOBUTAMINE HYDROCHLORIDE
     Indication: Cardiogenic shock
     Dosage: 2.07 ML/H, CONT
     Route: 042
     Dates: start: 20200601
  190. DOBUTAMINE [Suspect]
     Active Substance: DOBUTAMINE HYDROCHLORIDE
     Dosage: 3.11 MILLILITRE PER HOUR,, CONT
     Route: 042
  191. DOBUTAMINE [Suspect]
     Active Substance: DOBUTAMINE HYDROCHLORIDE
     Dosage: UNK, PRN
     Route: 042
  192. DOBUTAMINE [Suspect]
     Active Substance: DOBUTAMINE HYDROCHLORIDE
     Dosage: UNK
     Route: 042
  193. DOBUTAMINE [Suspect]
     Active Substance: DOBUTAMINE HYDROCHLORIDE
     Dosage: UNK
     Route: 042
  194. SODIUM PICOSULFATE [Suspect]
     Active Substance: SODIUM PICOSULFATE
     Indication: Constipation
     Dosage: 10 MG, PRN
     Route: 054
  195. SODIUM PICOSULFATE [Suspect]
     Active Substance: SODIUM PICOSULFATE
     Indication: Analgesic therapy
     Dosage: 12.5 MG, QMO
     Route: 065
  196. SODIUM PICOSULFATE [Suspect]
     Active Substance: SODIUM PICOSULFATE
     Dosage: 10 UNK
     Route: 065
  197. BISACODYL [Suspect]
     Active Substance: BISACODYL
     Indication: Constipation
     Dosage: 10 MG, PRN
     Route: 054
  198. BISACODYL [Suspect]
     Active Substance: BISACODYL
     Indication: Ventricular fibrillation
     Dosage: UNK
     Route: 042
  199. BISACODYL [Suspect]
     Active Substance: BISACODYL
     Indication: Drug therapy
     Dosage: 10 MG
     Route: 042
  200. BISACODYL [Suspect]
     Active Substance: BISACODYL
     Dosage: 10 MG, QD
     Route: 054
  201. BISACODYL [Suspect]
     Active Substance: BISACODYL
     Dosage: 10 MG, QD
     Route: 054
  202. BISACODYL [Suspect]
     Active Substance: BISACODYL
     Dosage: 10 MG, PRN
     Route: 054
  203. BISACODYL [Suspect]
     Active Substance: BISACODYL
     Dosage: 10 MG
     Route: 042
  204. HERBALS\PAULLINIA CUPANA SEED [Suspect]
     Active Substance: HERBALS\PAULLINIA CUPANA SEED
     Indication: Nutritional supplementation
     Dosage: 12.5 MG
     Route: 042
  205. PYRIDOXINE HYDROCHLORIDE [Suspect]
     Active Substance: PYRIDOXINE HYDROCHLORIDE
     Indication: Vitamin supplementation
     Dosage: UNK, QID
     Route: 048
  206. PYRIDOXINE HYDROCHLORIDE [Suspect]
     Active Substance: PYRIDOXINE HYDROCHLORIDE
     Indication: Analgesic therapy
     Dosage: 10 MG, PRN
     Route: 048
  207. PYRIDOXINE HYDROCHLORIDE [Suspect]
     Active Substance: PYRIDOXINE HYDROCHLORIDE
     Dosage: UNK, Q6H (UNK, QID)
     Route: 048
  208. PYRIDOXINE HYDROCHLORIDE [Suspect]
     Active Substance: PYRIDOXINE HYDROCHLORIDE
     Dosage: UNK
     Route: 048
  209. PYRIDOXINE HYDROCHLORIDE [Suspect]
     Active Substance: PYRIDOXINE HYDROCHLORIDE
     Dosage: 10 MG
     Route: 048
  210. FRAGMIN [Suspect]
     Active Substance: DALTEPARIN SODIUM
     Indication: Pulmonary embolism
     Dosage: 2.5 ML, PRN
     Route: 048
  211. FRAGMIN [Suspect]
     Active Substance: DALTEPARIN SODIUM
     Indication: Thrombosis
     Dosage: UNK
     Route: 065
  212. FRAGMIN [Suspect]
     Active Substance: DALTEPARIN SODIUM
     Dosage: UNK
     Route: 065
  213. PHYTONADIONE [Suspect]
     Active Substance: PHYTONADIONE
     Indication: Vitamin supplementation
     Dosage: 5 MG, PRN
     Route: 042
     Dates: start: 20200602, end: 20200602
  214. PHYTONADIONE [Suspect]
     Active Substance: PHYTONADIONE
     Dosage: 5 MG, QD
     Route: 017
  215. PHYTONADIONE [Suspect]
     Active Substance: PHYTONADIONE
     Dosage: 5 MG
     Route: 042
  216. MALTOSE [Suspect]
     Active Substance: MALTOSE
     Indication: Nutritional supplementation
     Dosage: 12.5 G, PRN
     Route: 042
  217. LUTEIN [Suspect]
     Active Substance: LUTEIN
     Indication: Product used for unknown indication
     Dosage: UNK (DOSE 12.5)
     Route: 065
  218. DIETARY SUPPLEMENT [Suspect]
     Active Substance: DIETARY SUPPLEMENT
     Indication: Vitamin supplementation
     Dosage: 5 MG
     Route: 042
  219. DIETARY SUPPLEMENT [Suspect]
     Active Substance: DIETARY SUPPLEMENT
     Dosage: 5 MG, PRN
     Route: 017
  220. XYLOMETAZOLINE [Suspect]
     Active Substance: XYLOMETAZOLINE
     Indication: Dyspnoea
     Dosage: UNK
  221. XYLOMETAZOLINE [Suspect]
     Active Substance: XYLOMETAZOLINE
     Dosage: UNK
     Route: 065
  222. OSELTAMIVIR PHOSPHATE [Suspect]
     Active Substance: OSELTAMIVIR PHOSPHATE
     Indication: Product used for unknown indication
     Dosage: 133 ML, PRN
     Route: 054
  223. .BETA.-CAROTENE [Suspect]
     Active Substance: .BETA.-CAROTENE
     Indication: Nutritional supplementation
     Dosage: 12.5 G, PRN
     Route: 042
  224. INSULIN ASPART [Suspect]
     Active Substance: INSULIN ASPART
     Indication: Diabetes mellitus
     Dosage: UNK, PRN
     Route: 058
  225. INSULIN ASPART [Suspect]
     Active Substance: INSULIN ASPART
     Dosage: UNK
     Route: 048
  226. INSULIN ASPART [Suspect]
     Active Substance: INSULIN ASPART
     Dosage: DOSE : 6 UNITS, BEFORE SUPPER, PRN, PRN
     Route: 058
  227. INSULIN ASPART [Suspect]
     Active Substance: INSULIN ASPART
     Dosage: UNK UNK, PRN
     Route: 065
  228. INSULIN ASPART [Suspect]
     Active Substance: INSULIN ASPART
     Dosage: UNK
     Route: 058
  229. INSULIN ASPART [Suspect]
     Active Substance: INSULIN ASPART
     Dosage: UNK
     Route: 058
  230. INSULIN ASPART [Suspect]
     Active Substance: INSULIN ASPART
     Dosage: UNK
     Route: 058
  231. INSULIN ASPART [Suspect]
     Active Substance: INSULIN ASPART
     Dosage: UNK
     Route: 058
  232. INSULIN ASPART [Suspect]
     Active Substance: INSULIN ASPART
     Dosage: UNK
     Route: 065
  233. INSULIN ASPART [Suspect]
     Active Substance: INSULIN ASPART
     Dosage: UNK
     Route: 065
  234. INSULIN ASPART [Suspect]
     Active Substance: INSULIN ASPART
     Dosage: UNK
     Route: 065
  235. ATROVENT [Suspect]
     Active Substance: IPRATROPIUM BROMIDE
     Indication: Dyspnoea
     Dosage: UNK, QID
  236. ATROVENT [Suspect]
     Active Substance: IPRATROPIUM BROMIDE
     Indication: Sleep disorder therapy
     Dosage: UNK, Q6H (QID)
     Route: 055
  237. ATROVENT [Suspect]
     Active Substance: IPRATROPIUM BROMIDE
     Dosage: UNK, QD
     Route: 055
  238. ATROVENT [Suspect]
     Active Substance: IPRATROPIUM BROMIDE
     Dosage: 1 DF, Q6H
     Route: 055
  239. ATROVENT [Suspect]
     Active Substance: IPRATROPIUM BROMIDE
     Dosage: UNK, QID (UNK, Q4D)
     Route: 055
  240. ATROVENT [Suspect]
     Active Substance: IPRATROPIUM BROMIDE
     Dosage: UNK, Q6H
     Route: 050
  241. UNSPECIFIED INGREDIENT [Suspect]
     Active Substance: UNSPECIFIED INGREDIENT
     Indication: Product used for unknown indication
     Dosage: 250 ML, QD
     Route: 042
  242. UNSPECIFIED INGREDIENT [Suspect]
     Active Substance: UNSPECIFIED INGREDIENT
     Dosage: 50 ML, QD
     Route: 042
  243. NOREPINEPHRINE [Suspect]
     Active Substance: NOREPINEPHRINE
     Indication: Stress
     Dosage: 3 MG, QD
     Route: 065
  244. NOREPINEPHRINE [Suspect]
     Active Substance: NOREPINEPHRINE
     Dosage: 1 MG, QD
     Route: 048
  245. NOREPINEPHRINE [Suspect]
     Active Substance: NOREPINEPHRINE
     Dosage: UNK, QD
     Route: 048
  246. SODIUM PHOSPHATE, MONOBASIC [Suspect]
     Active Substance: SODIUM PHOSPHATE, MONOBASIC
     Indication: Constipation
     Dosage: 133 ML, PRN
     Route: 054
     Dates: start: 20200601
  247. DEXTROSE AND SODIUM CHLORIDE [Suspect]
     Active Substance: DEXTROSE MONOHYDRATE\SODIUM CHLORIDE
     Indication: Nutritional supplementation
     Dosage: UNK
     Route: 042
  248. AMINOBENZOIC ACID [Suspect]
     Active Substance: AMINOBENZOIC ACID
     Indication: Product used for unknown indication
     Dosage: 12.5 MG
     Route: 065
  249. DEXTROSE\SODIUM CHLORIDE [Suspect]
     Active Substance: DEXTROSE\SODIUM CHLORIDE
     Indication: Nutritional supplementation
     Dosage: UNK
     Route: 042
  250. RINGERS AND DEXTROSE SOLUTION [Suspect]
     Active Substance: CALCIUM CHLORIDE\DEXTROSE\POTASSIUM CHLORIDE\SODIUM CHLORIDE
     Indication: Nutritional supplementation
     Dosage: UNK
     Route: 065
  251. ELECTROLYTES NOS\POLYETHYLENE GLYCOL 3350 [Suspect]
     Active Substance: ELECTROLYTES NOS\POLYETHYLENE GLYCOL 3350
     Indication: Constipation
     Dosage: 17 G, QD
     Route: 048
  252. ELECTROLYTES NOS\POLYETHYLENE GLYCOL 3350 [Suspect]
     Active Substance: ELECTROLYTES NOS\POLYETHYLENE GLYCOL 3350
     Dosage: 17 MG, QD
     Route: 048
  253. MAALOX ANTACID [Suspect]
     Active Substance: ALUMINUM HYDROXIDE\DIMETHICONE\MAGNESIUM HYDROXIDE
     Indication: Constipation
     Dosage: 133 ML
     Route: 054
  254. SODIUM PHOSPHATE, MONOBASIC [Suspect]
     Active Substance: SODIUM PHOSPHATE, MONOBASIC
     Indication: Constipation
     Dosage: 133 ML, PRN
     Route: 054
  255. MANNITOL [Suspect]
     Active Substance: MANNITOL
     Indication: Nutritional supplementation
     Dosage: 12.5 G
     Route: 042
  256. POLYETHYLENE GLYCOL 4000 [Suspect]
     Active Substance: POLYETHYLENE GLYCOL 4000
     Indication: Constipation
     Dosage: 17 MG, QD
     Route: 048
  257. POLYETHYLENE GLYCOL 4000 [Suspect]
     Active Substance: POLYETHYLENE GLYCOL 4000
     Dosage: 3 MG, QW
     Route: 048
  258. POLYETHYLENE GLYCOL 4000 [Suspect]
     Active Substance: POLYETHYLENE GLYCOL 4000
     Dosage: 17 MG, QD
     Route: 048
  259. POLYETHYLENE GLYCOL 4000 [Suspect]
     Active Substance: POLYETHYLENE GLYCOL 4000
     Dosage: 17 MG
     Route: 048
  260. POLYETHYLENE GLYCOL 4000 [Suspect]
     Active Substance: POLYETHYLENE GLYCOL 4000
     Dosage: UNK UNK, QD
     Route: 048
  261. POLYETHYLENE GLYCOL 4000 [Suspect]
     Active Substance: POLYETHYLENE GLYCOL 4000
     Dosage: 2.5 ML, QD
     Route: 042
  262. POLYETHYLENE GLYCOL 4000 [Suspect]
     Active Substance: POLYETHYLENE GLYCOL 4000
     Dosage: 1 DOSAGE FORM, Q6H
     Route: 055
  263. POLYETHYLENE GLYCOL 4000 [Suspect]
     Active Substance: POLYETHYLENE GLYCOL 4000
     Dosage: 17 UNK, QD
     Route: 048
  264. POLYETHYLENE GLYCOL 4000 [Suspect]
     Active Substance: POLYETHYLENE GLYCOL 4000
     Dosage: 17 UNK
     Route: 065
  265. CARBOHYDRATES [Suspect]
     Active Substance: CARBOHYDRATES
     Indication: Vitamin supplementation
     Dosage: 5 MG
     Route: 042
  266. CARBOHYDRATES [Suspect]
     Active Substance: CARBOHYDRATES
     Dosage: 5 MG
     Route: 042
  267. TRESIBA [Suspect]
     Active Substance: INSULIN DEGLUDEC
     Indication: Diabetes mellitus
     Dosage: 1 DOSAGE FORM, QD
     Route: 058
  268. TRESIBA [Suspect]
     Active Substance: INSULIN DEGLUDEC
     Dosage: UNK
     Route: 058
  269. TRESIBA [Suspect]
     Active Substance: INSULIN DEGLUDEC
     Dosage: UNK
     Route: 065
  270. FOSRENOL [Suspect]
     Active Substance: LANTHANUM CARBONATE
     Indication: Hyperphosphataemia
     Dosage: 500 MG, QD
     Route: 048
  271. FOSRENOL [Suspect]
     Active Substance: LANTHANUM CARBONATE
     Indication: Blood phosphorus increased
     Dosage: 500 MG, PRN
     Route: 048
  272. FOSRENOL [Suspect]
     Active Substance: LANTHANUM CARBONATE
     Indication: Hyperphosphataemia
  273. DIPROSONE [Suspect]
     Active Substance: BETAMETHASONE DIPROPIONATE
     Indication: Swelling
     Dosage: UNK UNK, QD
     Route: 061
  274. DIPROSONE [Suspect]
     Active Substance: BETAMETHASONE DIPROPIONATE
     Dosage: UNK, QD
     Route: 065
  275. DIPROSONE [Suspect]
     Active Substance: BETAMETHASONE DIPROPIONATE
     Dosage: UNK, QD
     Route: 061
  276. HEPARIN CALCIUM [Suspect]
     Active Substance: HEPARIN CALCIUM
     Indication: Anticoagulant therapy
     Dosage: 50 ML
     Route: 042
  277. POTASSIUM CHLORATE [Suspect]
     Active Substance: POTASSIUM CHLORATE
     Indication: Product used for unknown indication
     Dosage: UNK
     Route: 065
  278. ZOCOR [Suspect]
     Active Substance: SIMVASTATIN
     Indication: Blood cholesterol increased
     Dosage: 40 MG, QD
     Route: 048
  279. FURAZOLIDONE [Suspect]
     Active Substance: FURAZOLIDONE
     Indication: Product used for unknown indication
     Dosage: 12.5 MG
     Route: 042
  280. DEXILANT [Suspect]
     Active Substance: DEXLANSOPRAZOLE
     Indication: Product used for unknown indication
     Dosage: 60 MILLIGRAM
     Route: 048
  281. AMIODARONE HYDROCHLORIDE [Suspect]
     Active Substance: AMIODARONE HYDROCHLORIDE
     Indication: Drug therapy
     Dosage: 150 MG, QD
     Route: 042
     Dates: start: 20200602, end: 20200602
  282. AMIODARONE HYDROCHLORIDE [Suspect]
     Active Substance: AMIODARONE HYDROCHLORIDE
     Indication: Ventricular fibrillation
     Dosage: UNK UNK, QD
     Route: 065
  283. AMIODARONE HYDROCHLORIDE [Suspect]
     Active Substance: AMIODARONE HYDROCHLORIDE
     Dosage: UNK
     Route: 065
  284. AMIODARONE HYDROCHLORIDE [Suspect]
     Active Substance: AMIODARONE HYDROCHLORIDE
     Dosage: 27.78 ML/H, CONT
     Route: 042
     Dates: start: 20200603
  285. DIPYRONE [Suspect]
     Active Substance: DIPYRONE
     Indication: Product used for unknown indication
     Dosage: 5 MILLIGRAM
     Route: 042
  286. XANTOFYL PALMITATE [Suspect]
     Active Substance: XANTOFYL PALMITATE
     Indication: Nutritional supplementation
     Dosage: 12.5 G, PRN
     Route: 065
  287. MAGNESIUM OXIDE [Suspect]
     Active Substance: MAGNESIUM OXIDE
     Indication: Constipation
     Dosage: 133 MILLILITER, PRN
     Route: 065
  288. MAGNESIUM OXIDE [Suspect]
     Active Substance: MAGNESIUM OXIDE
     Dosage: UNK
     Route: 065
  289. PROPYLENE GLYCOL [Suspect]
     Active Substance: PROPYLENE GLYCOL
     Indication: Product used for unknown indication
     Dosage: UNK
     Route: 065
  290. OTRIVIN [Suspect]
     Active Substance: XYLOMETAZOLINE
     Indication: Dyspnoea
     Dosage: UNK
     Route: 055
  291. STEARIC ACID [Suspect]
     Active Substance: STEARIC ACID
     Indication: Constipation
     Dosage: 17 G, QD
     Route: 065
  292. MAGNESIUM TRISILICATE [Suspect]
     Active Substance: MAGNESIUM TRISILICATE
     Indication: Product used for unknown indication
     Dosage: 133 ML, PRN
     Route: 065
  293. ISOPROPYL MYRISTATE [Suspect]
     Active Substance: ISOPROPYL MYRISTATE
     Indication: Constipation
     Dosage: 17 G
     Route: 065
  294. INSULIN PORK\INSULIN PURIFIED PORK [Suspect]
     Active Substance: INSULIN PORK\INSULIN PURIFIED PORK
     Indication: Diabetes mellitus
     Dosage: UNK
     Route: 065
  295. FERROUS SUCCINATE [Suspect]
     Active Substance: FERROUS SUCCINATE
     Indication: Iron deficiency
     Dosage: UNK, Q6H
     Route: 042
  296. .ALPHA.-TOCOPHEROL SUCCINATE, D- [Suspect]
     Active Substance: .ALPHA.-TOCOPHEROL SUCCINATE, D-
     Indication: Constipation
     Dosage: 17 G, QD
     Route: 065
  297. CALCITRIOL [Suspect]
     Active Substance: CALCITRIOL
     Indication: Vitamin D
     Dosage: 0.25 UG, QD
     Route: 048
  298. BIOTIN [Suspect]
     Active Substance: BIOTIN
     Indication: Product used for unknown indication
     Dosage: UNK
     Route: 065
  299. DULCOLAX NOS [Suspect]
     Active Substance: BISACODYL OR DOCUSATE SODIUM
     Indication: Constipation
     Dosage: 10 MG, QD
     Route: 054
  300. DULCOLAX NOS [Suspect]
     Active Substance: BISACODYL OR DOCUSATE SODIUM
     Indication: Intentional product misuse
     Dosage: 10 MG, PRN
     Route: 054
     Dates: start: 20200601
  301. DULCOLAX NOS [Suspect]
     Active Substance: BISACODYL OR DOCUSATE SODIUM
     Indication: Off label use
     Dosage: 10 MG, QD
     Route: 054
  302. DULCOLAX NOS [Suspect]
     Active Substance: BISACODYL OR DOCUSATE SODIUM
     Dosage: UNK
     Route: 065
  303. CHLORPHENIRAMINE [Suspect]
     Active Substance: CHLORPHENIRAMINE
     Indication: Product used for unknown indication
     Dosage: UNK
     Route: 065
  304. POTASSIUM CHLORIDE [Suspect]
     Active Substance: POTASSIUM CHLORIDE
     Indication: Constipation
     Dosage: 17 G, QD
     Route: 048
  305. POTASSIUM CHLORIDE [Suspect]
     Active Substance: POTASSIUM CHLORIDE
     Dosage: UNK
     Route: 065
  306. POTASSIUM CHLORIDE [Suspect]
     Active Substance: POTASSIUM CHLORIDE
     Dosage: 17 G, QD
     Route: 048
  307. POTASSIUM CHLORIDE [Suspect]
     Active Substance: POTASSIUM CHLORIDE
     Dosage: UNK
     Route: 065
  308. POTASSIUM CHLORIDE [Suspect]
     Active Substance: POTASSIUM CHLORIDE
     Dosage: UNK
     Route: 065
  309. ASIAN GINSENG [Suspect]
     Active Substance: ASIAN GINSENG
     Indication: Nutritional supplementation
     Dosage: 12 MG
     Route: 065
  310. SUCROSE [Suspect]
     Active Substance: SUCROSE
     Indication: Iron deficiency
     Dosage: 125 MG, Q4W
     Route: 065
  311. SUCROSE [Suspect]
     Active Substance: SUCROSE
     Dosage: UNK UNK, Q4W
     Route: 065
  312. VITAMIN A PALMITATE [Suspect]
     Active Substance: VITAMIN A PALMITATE
     Indication: Constipation
     Dosage: 17 G, QD
     Route: 065
  313. DEXLANSOPRAZOLE [Suspect]
     Active Substance: DEXLANSOPRAZOLE
     Indication: Product used for unknown indication
     Dosage: 60 MG, QD
     Route: 048
  314. DEXLANSOPRAZOLE [Suspect]
     Active Substance: DEXLANSOPRAZOLE
     Dosage: UNK
     Route: 065
  315. DEXLANSOPRAZOLE [Suspect]
     Active Substance: DEXLANSOPRAZOLE
     Dosage: 6 DOSAGE FORM, Q6H
     Route: 048
  316. BISMUTH [Suspect]
     Active Substance: BISMUTH
     Indication: Constipation
     Dosage: 133 ML AS NECESSARY
     Route: 054
  317. HORSE CHESTNUT [Suspect]
     Active Substance: HORSE CHESTNUT
     Indication: Product used for unknown indication
     Dosage: UNK
     Route: 065
  318. HEPARIN SODIUM AND DEXTROSE [Suspect]
     Active Substance: HEPARIN SODIUM
     Indication: Off label use
     Dosage: 250 ML, QD
     Route: 042
  319. HEPARIN SODIUM AND DEXTROSE [Suspect]
     Active Substance: HEPARIN SODIUM
     Indication: Anticoagulant therapy
     Dosage: 50 ML, QD
     Route: 042
  320. HEPARIN SODIUM AND DEXTROSE [Suspect]
     Active Substance: HEPARIN SODIUM
     Dosage: 50 ML, PRN
     Route: 042
     Dates: start: 20200602
  321. HEPARIN SODIUM AND DEXTROSE [Suspect]
     Active Substance: HEPARIN SODIUM
     Dosage: 250 ML (250 UNK)
     Route: 017
  322. HEPARIN SODIUM AND DEXTROSE [Suspect]
     Active Substance: HEPARIN SODIUM
     Dosage: 50 ML
     Route: 017
  323. HEPARIN SODIUM AND DEXTROSE [Suspect]
     Active Substance: HEPARIN SODIUM
     Dosage: 50 ML, QD (50 ML, 1X/DAY)
     Route: 042
  324. HEPARIN SODIUM AND DEXTROSE [Suspect]
     Active Substance: HEPARIN SODIUM
     Dosage: 250 ML, PRN (250 ML)
     Route: 042
  325. HEPARIN SODIUM AND DEXTROSE [Suspect]
     Active Substance: HEPARIN SODIUM
     Dosage: 50 ML, QD (50 ML, AS NECESSARY, QD)
     Route: 042
  326. VITAMIN B6 [Suspect]
     Active Substance: PYRIDOXINE HYDROCHLORIDE
     Indication: Product used for unknown indication
     Dosage: UNK
     Route: 048
  327. FENOTEROL [Suspect]
     Active Substance: FENOTEROL
     Indication: Dyspnoea
     Dosage: UNK, QD
     Route: 065
  328. FENOTEROL [Suspect]
     Active Substance: FENOTEROL
     Dosage: UNK, QD
     Route: 065
  329. FENOTEROL [Suspect]
     Active Substance: FENOTEROL
     Dosage: 3 DOSAGE FORM, QD
     Route: 065
  330. FENOTEROL [Suspect]
     Active Substance: FENOTEROL
     Dosage: 1 DOSAGE FORM, Q8H
     Route: 065
  331. FENOTEROL [Suspect]
     Active Substance: FENOTEROL
     Dosage: 1 DOSAGE FORM, QD
     Route: 065
  332. FENOTEROL [Suspect]
     Active Substance: FENOTEROL
     Dosage: 1 DOSAGE FORM, TID
     Route: 050
  333. FENOTEROL [Suspect]
     Active Substance: FENOTEROL
     Dosage: UNK, QD (4)
     Route: 065
  334. BUFEXAMAC [Suspect]
     Active Substance: BUFEXAMAC
     Indication: Constipation
     Dosage: 133 ML AS NECESSARY
     Route: 065
  335. PANTHENOL [Suspect]
     Active Substance: PANTHENOL
     Indication: Constipation
     Dosage: 17 G, QD
     Route: 065
  336. PYRIDOXINE HYDROCHLORIDE [Suspect]
     Active Substance: PYRIDOXINE HYDROCHLORIDE
     Indication: Vitamin supplementation
     Dosage: 1 DOSAGE FORM, QD
     Route: 048
  337. PYRIDOXINE HYDROCHLORIDE [Suspect]
     Active Substance: PYRIDOXINE HYDROCHLORIDE
     Dosage: UNK, QD
     Route: 048
  338. TITANIUM [Suspect]
     Active Substance: TITANIUM
     Indication: Constipation
     Dosage: 133 ML, AS NECESSARY
     Route: 065
  339. HYDROCORTISONE ACETATE [Suspect]
     Active Substance: HYDROCORTISONE ACETATE
     Indication: Product used for unknown indication
     Dosage: UNK
     Route: 065
  340. SAFFLOWER [Suspect]
     Active Substance: SAFFLOWER
     Indication: Constipation
     Dosage: 17 G, QD
     Route: 065
  341. AMMONIUM CHLORIDE [Suspect]
     Active Substance: AMMONIUM CHLORIDE
     Indication: Thrombosis
     Dosage: 2.5 ML, PRN
     Route: 065
  342. NATAMYCIN [Suspect]
     Active Substance: NATAMYCIN
     Indication: Bacterial infection
     Dosage: 1500 MG
     Route: 065
  343. ALOE VERA LEAF [Suspect]
     Active Substance: ALOE VERA LEAF
     Indication: Constipation
     Dosage: 17 MG, QD
     Route: 065
  344. SODIUM BICARBONATE [Suspect]
     Active Substance: SODIUM BICARBONATE
     Indication: Nutritional supplementation
     Dosage: 12 G, PRN
     Route: 065
  345. .ALPHA.-TOCOPHEROL [Suspect]
     Active Substance: .ALPHA.-TOCOPHEROL
     Indication: Constipation
     Dosage: 17 G, QD
     Route: 065
  346. PHENOXYETHANOL [Suspect]
     Active Substance: PHENOXYETHANOL
     Indication: Constipation
     Dosage: 17 G, QD
     Route: 065
  347. MAGNESIUM CARBONATE [Suspect]
     Active Substance: MAGNESIUM CARBONATE
     Indication: Constipation
     Dosage: 133 ML, PRN
     Route: 065
  348. STEARYL ALCOHOL [Suspect]
     Active Substance: STEARYL ALCOHOL
     Indication: Constipation
     Dosage: 17 G, QD
     Route: 065
  349. SOYBEAN OIL [Suspect]
     Active Substance: SOYBEAN OIL
     Indication: Constipation
     Dosage: 17 G, QD
     Route: 065
  350. GLYCERYL MONOSTEARATE [Suspect]
     Active Substance: GLYCERYL MONOSTEARATE
     Indication: Constipation
     Dosage: 17 G, QD
     Route: 065
  351. FLUTICASONE [Suspect]
     Active Substance: FLUTICASONE
     Indication: Product used for unknown indication
     Route: 065
  352. UNSPECIFIED INGREDIENT [Suspect]
     Active Substance: UNSPECIFIED INGREDIENT
     Indication: Dyspnoea
     Dosage: 1 IU
     Route: 048
  353. UNSPECIFIED INGREDIENT [Suspect]
     Active Substance: UNSPECIFIED INGREDIENT
     Dosage: 1 IU
     Route: 048
  354. CALCITRIOL [Suspect]
     Active Substance: CALCITRIOL
     Indication: Vitamin D
     Dosage: 0.25 MG, QD (DAILY TTS)
     Route: 048
     Dates: start: 20200528
  355. CALCITRIOL [Suspect]
     Active Substance: CALCITRIOL
     Indication: Hypovitaminosis
  356. DOCUSATE SODIUM [Suspect]
     Active Substance: DOCUSATE SODIUM
     Indication: Product used for unknown indication
     Dosage: UNK
     Route: 065
  357. VITAMIN C [Suspect]
     Active Substance: ASCORBIC ACID
     Indication: Constipation
     Dosage: UNK
     Route: 065
  358. VITAMIN C [Suspect]
     Active Substance: ASCORBIC ACID
     Indication: Vitamin supplementation
  359. SODIUM [Suspect]
     Active Substance: SODIUM
     Indication: Product used for unknown indication
     Route: 065
  360. PREVACID [Suspect]
     Active Substance: LANSOPRAZOLE
     Indication: Antacid therapy
     Dosage: 30 MG, QD
     Route: 065
  361. DIETARY SUPPLEMENT [Suspect]
     Active Substance: DIETARY SUPPLEMENT
     Indication: Product used for unknown indication
     Dosage: 5 MG, QD
     Route: 042
  362. VITAMIN K1 [Suspect]
     Active Substance: PHYTONADIONE
     Indication: Product used for unknown indication
     Dosage: 5 MG
     Route: 042
  363. NOREPINEPHRINE BITARTRATE [Suspect]
     Active Substance: NOREPINEPHRINE BITARTRATE
     Indication: Stress
     Dosage: 3 MG, QD
     Route: 065
  364. ALBUTEROL [Suspect]
     Active Substance: ALBUTEROL
     Indication: Chronic obstructive pulmonary disease
     Dosage: 1 DOSAGE FORM, Q6H
     Route: 065
  365. ALBUTEROL [Suspect]
     Active Substance: ALBUTEROL
     Dosage: 4 DOSAGE FORM, Q6H
     Route: 065
  366. PYRIDOXINE HYDROCHLORIDE [Suspect]
     Active Substance: PYRIDOXINE HYDROCHLORIDE
     Indication: Constipation
     Dosage: 10 MG, PRN (AS NECESSARY)
     Route: 048
  367. PYRIDOXINE HYDROCHLORIDE [Suspect]
     Active Substance: PYRIDOXINE HYDROCHLORIDE
     Indication: Analgesic therapy
  368. PYRIDOXINE HYDROCHLORIDE [Suspect]
     Active Substance: PYRIDOXINE HYDROCHLORIDE
     Indication: Vitamin supplementation
  369. HYDROMORPHONE HYDROCHLORIDE [Suspect]
     Active Substance: HYDROMORPHONE HYDROCHLORIDE
     Indication: Analgesic therapy
     Dosage: 6 MG, Q6H
     Route: 058
  370. HYDROMORPHONE HYDROCHLORIDE [Suspect]
     Active Substance: HYDROMORPHONE HYDROCHLORIDE
     Indication: Off label use
     Dosage: 6 MG, Q4H
     Route: 058
  371. HYDROMORPHONE HYDROCHLORIDE [Suspect]
     Active Substance: HYDROMORPHONE HYDROCHLORIDE
     Dosage: 6 MG
     Route: 058
  372. HYDROMORPHONE HYDROCHLORIDE [Suspect]
     Active Substance: HYDROMORPHONE HYDROCHLORIDE
     Dosage: UNK
     Route: 065
  373. HYDROMORPHONE HYDROCHLORIDE [Suspect]
     Active Substance: HYDROMORPHONE HYDROCHLORIDE
     Dosage: 24 MG, Q4H
     Route: 058
  374. HYDROMORPHONE HYDROCHLORIDE [Suspect]
     Active Substance: HYDROMORPHONE HYDROCHLORIDE
     Dosage: 4 MG, Q4H
     Route: 058
  375. HYDROMORPHONE HYDROCHLORIDE [Suspect]
     Active Substance: HYDROMORPHONE HYDROCHLORIDE
     Dosage: 6 MG
     Route: 058
  376. HYDROMORPHONE HYDROCHLORIDE [Suspect]
     Active Substance: HYDROMORPHONE HYDROCHLORIDE
     Dosage: 24 MG, Q6H
     Route: 058
  377. HYDROMORPHONE HYDROCHLORIDE [Suspect]
     Active Substance: HYDROMORPHONE HYDROCHLORIDE
     Dosage: 17 MG, QD
     Route: 065
  378. HYDROMORPHONE HYDROCHLORIDE [Suspect]
     Active Substance: HYDROMORPHONE HYDROCHLORIDE
     Dosage: 1 MG, Q4H
     Route: 058
  379. HYDROMORPHONE HYDROCHLORIDE [Suspect]
     Active Substance: HYDROMORPHONE HYDROCHLORIDE
     Dosage: 1 MG, QD
     Route: 058
  380. HYDROMORPHONE HYDROCHLORIDE [Suspect]
     Active Substance: HYDROMORPHONE HYDROCHLORIDE
     Dosage: 96 MG, QD
     Route: 058
  381. DISODIUM HYDROGEN CITRATE [Concomitant]
     Active Substance: DISODIUM HYDROGEN CITRATE
     Indication: Thrombosis
     Dosage: 2.5 ML, PRN (4 GM/100 ML SOLUTION UNASSIGNED)
     Route: 065
  382. DISODIUM HYDROGEN CITRATE [Concomitant]
     Active Substance: DISODIUM HYDROGEN CITRATE
     Indication: Anticoagulant therapy
  383. VITAMIN D [Concomitant]
     Active Substance: VITAMIN D NOS
     Indication: Product used for unknown indication
     Dosage: UNK
     Route: 065
  384. RIBOFLAVIN [Concomitant]
     Active Substance: RIBOFLAVIN
     Indication: Product used for unknown indication
     Dosage: 17 G, QD
     Route: 065
  385. RIBOFLAVIN [Concomitant]
     Active Substance: RIBOFLAVIN
     Dosage: UNK
     Route: 048
  386. AMLODIPINE [Concomitant]
     Active Substance: AMLODIPINE BESYLATE
     Indication: Product used for unknown indication
     Dosage: UNK UNK, QD
     Route: 065
  387. RIBOFLAVIN 5^-PHOSPHATE SODIUM ANHYDROUS [Concomitant]
     Active Substance: RIBOFLAVIN 5^-PHOSPHATE SODIUM ANHYDROUS
     Indication: Product used for unknown indication
     Dosage: 17 G, QD
     Route: 065
  388. HYDROMORPHONE [Concomitant]
     Active Substance: HYDROMORPHONE
     Indication: Analgesic therapy
     Dosage: 24 MG, QD (6 MG, QID)
     Route: 058
  389. HYDROMORPHONE [Concomitant]
     Active Substance: HYDROMORPHONE
     Dosage: 36 MG (6 MILLIGRAM, Q4H)
     Route: 058
  390. HYDROMORPHONE [Concomitant]
     Active Substance: HYDROMORPHONE
     Dosage: 6 MG, Q6H (24 MILLIGRAM DAILY)
     Route: 058
  391. HYDROMORPHONE [Concomitant]
     Active Substance: HYDROMORPHONE
     Dosage: 4 MG, QD
     Route: 058
  392. HYDROMORPHONE [Concomitant]
     Active Substance: HYDROMORPHONE
     Dosage: 96 MG, QD (24 MILLIGRAM, Q6H)
     Route: 058
  393. HYDROMORPHONE [Concomitant]
     Active Substance: HYDROMORPHONE
     Dosage: 1 MG, QD
     Route: 058
  394. HYDROMORPHONE [Concomitant]
     Active Substance: HYDROMORPHONE
     Dosage: 1 MG, Q6H (1 MG, QID)
     Route: 058
  395. HYDROMORPHONE [Concomitant]
     Active Substance: HYDROMORPHONE
     Dosage: 6 MG, QD (1 MG, Q6H)
     Route: 065
     Dates: start: 20200529

REACTIONS (7)
  - Appendicolith [Fatal]
  - Pulmonary embolism [Fatal]
  - Chronic obstructive pulmonary disease [Fatal]
  - Abdominal pain [Fatal]
  - Appendicitis [Fatal]
  - Myasthenia gravis [Fatal]
  - Diabetes mellitus [Fatal]

NARRATIVE: CASE EVENT DATE: 20200601
